FAERS Safety Report 19479685 (Version 1)
Quarter: 2021Q3

REPORT INFORMATION
  Report Type: Spontaneous
  Country: GR (occurrence: GR)
  Receive Date: 20210701
  Receipt Date: 20210701
  Transmission Date: 20211014
  Serious: Yes (Hospitalization)
  Sender: FDA-Public Use
  Company Number: GR-JNJFOC-20210660155

PATIENT
  Sex: Female

DRUGS (1)
  1. REMICADE [Suspect]
     Active Substance: INFLIXIMAB
     Indication: CROHN^S DISEASE
     Route: 042
     Dates: start: 2005

REACTIONS (7)
  - Somnolence [Unknown]
  - Crohn^s disease [Recovering/Resolving]
  - Exposure during pregnancy [Recovered/Resolved]
  - Streptococcal infection [Recovering/Resolving]
  - Fistula discharge [Unknown]
  - Dizziness [Unknown]
  - Inflammation [Unknown]

NARRATIVE: CASE EVENT DATE: 201408
